FAERS Safety Report 6912362-1 (Version None)
Quarter: 2010Q3

REPORT INFORMATION
  Report Type: 
  Country: None (occurrence: None)
  Receive Date: 20100806
  Receipt Date: 20080529
  Transmission Date: 20110219
  Serious: No
  Sender: FDA-Public Use
  Company Number: US-PFIZER INC-2008034534

PATIENT
  Sex: Male
  Weight: 115.45 kg

DRUGS (10)
  1. DETROL LA [Suspect]
     Indication: HYPERTONIC BLADDER
     Dates: start: 20080416
  2. HYDROCHLOROTHIAZIDE [Concomitant]
  3. LISINOPRIL [Concomitant]
  4. SIMVASTATIN [Concomitant]
  5. TERAZOSIN HCL [Concomitant]
     Indication: PROSTATE CANCER
  6. TOPROL-XL [Concomitant]
  7. METOPROLOL [Concomitant]
  8. WARFARIN SODIUM [Concomitant]
  9. CALTRATE [Concomitant]
  10. CENTRUM SILVER [Concomitant]

REACTIONS (1)
  - DRUG INEFFECTIVE [None]
